FAERS Safety Report 4387837-2 (Version None)
Quarter: 2004Q2

REPORT INFORMATION
  Report Type: 
  Country: None (occurrence: None)
  Receive Date: 20040623
  Receipt Date: 20040604
  Transmission Date: 20050107
  Serious: Yes (Hospitalization)
  Sender: FDA-Public Use
  Company Number: US_0402101036

PATIENT
  Age: 33 Year
  Sex: Male

DRUGS (6)
  1. XIGRIS [Suspect]
     Indication: SEPSIS SYNDROME
  2. VANCOMYCIN [Concomitant]
  3. AMPICILLIN [Concomitant]
  4. METRONIDAZOLE [Concomitant]
  5. CEFEPIME [Concomitant]
  6. CIPROFLOXACIIN [Concomitant]

REACTIONS (2)
  - COAGULOPATHY [None]
  - PLATELET COUNT DECREASED [None]
